FAERS Safety Report 20757021 (Version 1)
Quarter: 2022Q2

REPORT INFORMATION
  Report Type: Spontaneous
  Country: US (occurrence: US)
  Receive Date: 20220427
  Receipt Date: 20220427
  Transmission Date: 20220721
  Serious: Yes (Other)
  Sender: FDA-Public Use
  Company Number: US-HORIZON THERAPEUTICS-HZN-2022-003118

PATIENT

DRUGS (1)
  1. DUEXIS [Suspect]
     Active Substance: FAMOTIDINE\IBUPROFEN
     Indication: Rheumatoid arthritis
     Dosage: 800MG/ 26.6MG, 1 TABLET BY MOUTH TWICE A DAY
     Route: 048

REACTIONS (1)
  - Gallbladder disorder [Unknown]
